FAERS Safety Report 5122395-6 (Version None)
Quarter: 2006Q3

REPORT INFORMATION
  Report Type: 
  Country: None (occurrence: None)
  Receive Date: 20060811
  Receipt Date: 20060630
  Transmission Date: 20061208
  Serious: No
  Sender: FDA-Public Use
  Company Number: S06-USA-02515-01

PATIENT
  Age: 53 Year
  Sex: Female

DRUGS (7)
  1. NAMENDA [Suspect]
     Indication: COGNITIVE DISORDER
     Dosage: 5 MG QD PO
     Route: 048
     Dates: start: 20060630
  2. ARICEPT [Concomitant]
  3. AVONEX [Concomitant]
  4. IBUPROFEN [Concomitant]
  5. GABAPENTIN [Concomitant]
  6. SOMA [Concomitant]
  7. ADDERALL (AMPHETAMINE MIXED SALTS) [Concomitant]

REACTIONS (2)
  - DIZZINESS [None]
  - NERVOUSNESS [None]
